FAERS Safety Report 23521258 (Version 5)
Quarter: 2024Q4

REPORT INFORMATION
  Report Type: Spontaneous
  Country: US (occurrence: US)
  Receive Date: 20240214
  Receipt Date: 20241203
  Transmission Date: 20250115
  Serious: Yes (Other)
  Sender: BRISTOL-MYERS SQUIBB COMPANY
  Company Number: US-BRISTOL-MYERS SQUIBB COMPANY-2024-020846

PATIENT
  Age: 79 Year
  Sex: Male

DRUGS (1)
  1. CAMZYOS [Suspect]
     Active Substance: MAVACAMTEN
     Indication: Hypertrophic cardiomyopathy
     Route: 048

REACTIONS (5)
  - Optic nerve cup/disc ratio increased [Unknown]
  - Glaucoma [Unknown]
  - Prostatic disorder [Unknown]
  - Oesophagitis [Unknown]
  - Dysuria [Unknown]

NARRATIVE: CASE EVENT DATE: 20240730
